FAERS Safety Report 18308671 (Version 1)
Quarter: 2020Q3

REPORT INFORMATION
  Report Type: Spontaneous
  Country: US (occurrence: US)
  Receive Date: 20200925
  Receipt Date: 20200925
  Transmission Date: 20201103
  Serious: No
  Sender: FDA-Public Use
  Company Number: US-SCIEGEN-2020SCISPO00302

PATIENT
  Age: 22 Year
  Sex: Male

DRUGS (2)
  1. ARIPIPRAZOLE. [Suspect]
     Active Substance: ARIPIPRAZOLE
     Indication: SOMNOLENCE
     Route: 065
  2. HYDROXYZINE [Suspect]
     Active Substance: HYDROXYZINE HYDROCHLORIDE
     Indication: SOMNOLENCE
     Route: 065

REACTIONS (6)
  - Drug ineffective [Unknown]
  - Tremor [Unknown]
  - Off label use [Unknown]
  - Appetite disorder [Unknown]
  - Musculoskeletal stiffness [Unknown]
  - Restlessness [Unknown]
